FAERS Safety Report 17590569 (Version 1)
Quarter: 2020Q1

REPORT INFORMATION
  Report Type: Spontaneous
  Country: FR (occurrence: FR)
  Receive Date: 20200327
  Receipt Date: 20200327
  Transmission Date: 20200409
  Serious: Yes (Hospitalization)
  Sender: FDA-Public Use
  Company Number: NVSC2020FR076352

PATIENT
  Age: 44 Year
  Sex: Male
  Weight: 78 kg

DRUGS (5)
  1. LITAK [Suspect]
     Active Substance: CLADRIBINE
     Indication: HAIRY CELL LEUKAEMIA
     Dosage: 1 DF, QD
     Route: 042
     Dates: start: 20191118, end: 20191123
  2. AMOXICILLIN. [Suspect]
     Active Substance: AMOXICILLIN
     Indication: PYREXIA
     Dosage: 3 DF, QD
     Route: 048
     Dates: start: 20191128, end: 20191201
  3. BACTRIM [Suspect]
     Active Substance: SULFAMETHOXAZOLE\TRIMETHOPRIM
     Indication: PROPHYLAXIS
     Dosage: 2400 MG, QW
     Route: 048
     Dates: start: 20191118, end: 20191203
  4. SPIRAMYCIN [Suspect]
     Active Substance: SPIRAMYCIN
     Indication: PYREXIA
     Dosage: 3 DF, QD
     Route: 048
     Dates: start: 20191128, end: 20191209
  5. ACIDE CLAVULANIQUE [Suspect]
     Active Substance: CLAVULANIC ACID
     Indication: PYREXIA
     Dosage: 3 DF, QD
     Route: 048
     Dates: start: 20191128, end: 20191201

REACTIONS (3)
  - Rash maculo-papular [Recovered/Resolved]
  - Pyrexia [Recovered/Resolved]
  - Diarrhoea [Recovered/Resolved]

NARRATIVE: CASE EVENT DATE: 20191125
